FAERS Safety Report 6054120-9 (Version None)
Quarter: 2009Q1

REPORT INFORMATION
  Report Type: 
  Country: None (occurrence: None)
  Receive Date: 20090123
  Receipt Date: 20090123
  Transmission Date: 20090719
  Serious: No
  Sender: FDA-Public Use
  Company Number: None

PATIENT
  Sex: Female

DRUGS (1)
  1. TASIGNA [Suspect]
     Dosage: 400 MG BID PO
     Route: 048
     Dates: start: 20090120

REACTIONS (4)
  - ARTHRALGIA [None]
  - BONE PAIN [None]
  - HEADACHE [None]
  - PAIN IN EXTREMITY [None]
